FAERS Safety Report 23040056 (Version 2)
Quarter: 2023Q4

REPORT INFORMATION
  Report Type: Spontaneous
  Country: RU (occurrence: None)
  Receive Date: 20231006
  Receipt Date: 20231026
  Transmission Date: 20240110
  Serious: Yes (Other)
  Sender: FDA-Public Use
  Company Number: 2023A210542

PATIENT
  Age: 35 Year
  Sex: Female
  Weight: 78 kg

DRUGS (7)
  1. SELUMETINIB [Suspect]
     Active Substance: SELUMETINIB
     Indication: Neurofibroma
     Route: 048
     Dates: start: 20230803
  2. SELUMETINIB [Suspect]
     Active Substance: SELUMETINIB
     Indication: Neurofibroma
     Route: 048
  3. TEBANTIN [Concomitant]
     Indication: Pain
     Dosage: 1-2 TIMES A DAY
     Dates: start: 2020
  4. ELIQUIS [Concomitant]
     Active Substance: APIXABAN
     Indication: Oedema
     Dates: start: 20230804, end: 20230930
  5. GABAPENTIN [Concomitant]
     Active Substance: GABAPENTIN
     Dates: start: 2020
  6. DOXYCYCLINE [Concomitant]
     Active Substance: DOXYCYCLINE
     Dates: start: 20230809, end: 20230825
  7. ACETAZOLAMIDE [Concomitant]
     Active Substance: ACETAZOLAMIDE
     Indication: Oedema
     Dates: start: 20230909, end: 20230911

REACTIONS (8)
  - Weight increased [Unknown]
  - Renal injury [Unknown]
  - Oedema peripheral [Recovering/Resolving]
  - Rash pustular [Recovering/Resolving]
  - Face oedema [Not Recovered/Not Resolved]
  - Dry skin [Unknown]
  - Off label use [Unknown]
  - Fatigue [Unknown]

NARRATIVE: CASE EVENT DATE: 20230807
